FAERS Safety Report 21481427 (Version 1)
Quarter: 2022Q4

REPORT INFORMATION
  Report Type: Report from Study
  Country: US (occurrence: US)
  Receive Date: 20221019
  Receipt Date: 20221019
  Transmission Date: 20230112
  Serious: No
  Sender: FDA-Public Use
  Company Number: US-ABBVIE-4137559

PATIENT
  Sex: Female

DRUGS (1)
  1. VENCLEXTA [Suspect]
     Active Substance: VENETOCLAX
     Indication: Chronic lymphocytic leukaemia
     Dosage: FORM STRENGTH: 100 MILLIGRAMS, TAKES4 TABLETS BY MOUTH ONCE DAILY WITH FOOD AND A FULL GLASS OF W...
     Route: 048

REACTIONS (3)
  - Gingival swelling [Unknown]
  - Taste disorder [Unknown]
  - Stomatitis [Unknown]
